FAERS Safety Report 7126754-1 (Version None)
Quarter: 2010Q4

REPORT INFORMATION
  Report Type: 
  Country: None (occurrence: None)
  Receive Date: 20101129
  Receipt Date: 20101124
  Transmission Date: 20110411
  Serious: Yes (Hospitalization)
  Sender: FDA-Public Use
  Company Number: DE-MERCK-1011DEU00121

PATIENT
  Sex: Male

DRUGS (2)
  1. VYTORIN [Suspect]
     Indication: HYPERLIPIDAEMIA
     Route: 048
     Dates: start: 20080101, end: 20101101
  2. PROPAFENONE HYDROCHLORIDE [Concomitant]
     Indication: ARRHYTHMIA
     Route: 048

REACTIONS (1)
  - ARRHYTHMIA [None]
